FAERS Safety Report 9494570 (Version 1)
Quarter: 2013Q3

REPORT INFORMATION
  Report Type: Spontaneous
  Country: FR (occurrence: FR)
  Receive Date: 20130903
  Receipt Date: 20130903
  Transmission Date: 20140515
  Serious: Yes (Hospitalization)
  Sender: FDA-Public Use
  Company Number: FR-EISAI INC-E3810-06627-SPO-FR

PATIENT
  Age: 66 Year
  Sex: Male

DRUGS (2)
  1. PARIET (RABEPRAZOLE) [Suspect]
     Indication: DUODENAL ULCER
     Route: 048
     Dates: start: 2013, end: 20130712
  2. PLAVIX [Suspect]
     Indication: CORONARY ARTERY DISEASE
     Route: 048
     Dates: start: 2003, end: 20130712

REACTIONS (3)
  - Coronary artery restenosis [Recovered/Resolved]
  - Myocardial infarction [Recovered/Resolved]
  - Drug interaction [Recovered/Resolved]
